FAERS Safety Report 17518248 (Version 2)
Quarter: 2022Q3

REPORT INFORMATION
  Report Type: Spontaneous
  Country: GB (occurrence: GB)
  Receive Date: 20200309
  Receipt Date: 20220819
  Transmission Date: 20221027
  Serious: Yes (Other)
  Sender: FDA-Public Use
  Company Number: None

PATIENT
  Age: 47 Year
  Sex: Male

DRUGS (13)
  1. IRINOTECAN [Suspect]
     Active Substance: IRINOTECAN
     Indication: Colon cancer
     Dosage: 288 MILLIGRAM, Q2W (FOR A TOTAL OF 12 CYCLES)
     Route: 042
     Dates: start: 20190102
  2. SIMVASTATIN [Suspect]
     Active Substance: SIMVASTATIN
     Indication: Colon cancer
     Dosage: 580MG (7.5MG/KG) INCREASED FROM 5MG/KG. FOR A TOTAL OF 12 CYCLES
     Route: 042
     Dates: start: 20190102
  3. LEUCOVORIN [Suspect]
     Active Substance: LEUCOVORIN
     Indication: Colon cancer
     Dosage: 350 MILLIGRAM
     Route: 042
     Dates: start: 20190102
  4. FLUOROURACIL [Suspect]
     Active Substance: FLUOROURACIL
     Indication: Colon cancer
     Dosage: 288MG IRINOTECAN + (4800MG IV + 800MG BOLUS INFUSION) FLUOROURACIL
     Route: 042
     Dates: start: 20190102
  5. AVASTIN [Suspect]
     Active Substance: BEVACIZUMAB
     Indication: Colon cancer
     Dosage: 580MG (7.5MG/KG) INCREASED FROM 5MG/KG
     Route: 042
     Dates: start: 20190102
  6. APREPITANT [Concomitant]
     Active Substance: APREPITANT
     Dosage: 125 MILLIGRAM
     Route: 065
  7. CHLORPHENIRAMINE MALEATE [Concomitant]
     Active Substance: CHLORPHENIRAMINE MALEATE
     Dosage: 10 MILLIGRAM
     Route: 065
  8. PEGFILGRASTIM [Concomitant]
     Active Substance: PEGFILGRASTIM
     Dosage: 6 MILLIGRAM
     Route: 065
  9. DEXAMETHASONE [Concomitant]
     Active Substance: DEXAMETHASONE
     Dosage: 8 MILLIGRAM
     Route: 065
  10. ATROPINE [Concomitant]
     Active Substance: ATROPINE
     Dosage: 0.25 MILLIGRAM
     Route: 065
  11. ZOPICLONE [Concomitant]
     Active Substance: ZOPICLONE
     Dosage: 3.75 MILLIGRAM
     Route: 065
  12. ONDANSETRON [Concomitant]
     Active Substance: ONDANSETRON
     Dosage: 8 MILLIGRAM
     Route: 065
  13. LEUCOVORIN [Concomitant]
     Active Substance: LEUCOVORIN
     Dosage: 350 MILLIGRAM
     Route: 065

REACTIONS (16)
  - Haematochezia [Unknown]
  - Neuropathy peripheral [Not Recovered/Not Resolved]
  - Proteinuria [Unknown]
  - Neuralgia [Not Recovered/Not Resolved]
  - Haemorrhoids [Unknown]
  - Sleep disorder [Unknown]
  - Dry skin [Unknown]
  - Mouth ulceration [Unknown]
  - Headache [Unknown]
  - Insomnia [Unknown]
  - Stomatitis [Unknown]
  - Alopecia [Not Recovered/Not Resolved]
  - Constipation [Unknown]
  - Nausea [Not Recovered/Not Resolved]
  - Diarrhoea [Not Recovered/Not Resolved]
  - Fatigue [Not Recovered/Not Resolved]
